FAERS Safety Report 4518639-1 (Version None)
Quarter: 2004Q4

REPORT INFORMATION
  Report Type: 
  Country: None (occurrence: None)
  Receive Date: 20041101
  Receipt Date: 20040210
  Transmission Date: 20050328
  Serious: Yes (Other)
  Sender: FDA-Public Use
  Company Number: 200411033US

PATIENT
  Sex: 0

DRUGS (1)
  1. ANZEMET [Suspect]

REACTIONS (1)
  - BRADYCARDIA [None]
